FAERS Safety Report 23586957 (Version 1)
Quarter: 2024Q1

REPORT INFORMATION
  Report Type: Report from Study
  Country: GB (occurrence: GB)
  Receive Date: 20240301
  Receipt Date: 20240301
  Transmission Date: 20240410
  Serious: Yes (Other)
  Sender: FDA-Public Use
  Company Number: GB-ROCHE-3145609

PATIENT
  Age: 59 Year
  Sex: Female
  Weight: 71.35 kg

DRUGS (12)
  1. CARBOPLATIN [Suspect]
     Active Substance: CARBOPLATIN
     Indication: Small cell lung cancer extensive stage
     Dosage: 560 MG
     Route: 065
     Dates: start: 20220511
  2. ATEZOLIZUMAB [Suspect]
     Active Substance: ATEZOLIZUMAB
     Indication: Small cell lung cancer extensive stage
     Dosage: ON 01/DEC/2022, MOST RECENT DOSE OF STUDY PRIOR AE 1200 MG
     Route: 041
     Dates: start: 20220511
  3. ETOPOSIDE [Suspect]
     Active Substance: ETOPOSIDE
     Indication: Small cell lung cancer extensive stage
     Dosage: 180 MG
     Route: 042
     Dates: start: 20220511
  4. ETOPOSIDE [Suspect]
     Active Substance: ETOPOSIDE
     Dosage: 350 MG
     Route: 048
     Dates: start: 20220715
  5. CITALOPRAM [Concomitant]
     Active Substance: CITALOPRAM HYDROBROMIDE
     Dosage: UNK, 1X/DAY
     Route: 065
     Dates: start: 2005
  6. EPIRUBICIN [Concomitant]
     Active Substance: EPIRUBICIN
     Indication: Neoplasm malignant
     Dosage: UNK, 1X/DAY
  7. ONDANSETRON [Concomitant]
     Active Substance: ONDANSETRON
     Dosage: 8 MG
     Route: 065
     Dates: start: 20220714, end: 20220714
  8. ALBUTEROL [Concomitant]
     Active Substance: ALBUTEROL
     Dosage: 1 DF, AS NEEDED
     Route: 065
     Dates: start: 20220301
  9. SIMVASTATIN [Concomitant]
     Active Substance: SIMVASTATIN
     Dosage: UNK, 1X/DAY
     Route: 065
     Dates: start: 2019
  10. BECLOMETHASONE DIPROPIONATE\FORMOTEROL FUMARATE\GLYCOPYRROLATE [Concomitant]
     Active Substance: BECLOMETHASONE DIPROPIONATE\FORMOTEROL FUMARATE\GLYCOPYRROLATE
     Dosage: UNK, 2X/DAY
     Route: 065
     Dates: start: 20220301
  11. ERGOCALCIFEROL [Concomitant]
     Active Substance: ERGOCALCIFEROL
     Indication: Prophylaxis
     Dosage: UNK, 2X/DAY
     Route: 065
     Dates: start: 2014
  12. TOPOTECAN [Concomitant]
     Active Substance: TOPOTECAN HYDROCHLORIDE
     Dosage: UNK
     Route: 065
     Dates: start: 20230120

REACTIONS (4)
  - Colitis [Recovered/Resolved]
  - Thrombocytopenia [Recovered/Resolved]
  - Diarrhoea [Recovered/Resolved]
  - Hypomagnesaemia [Recovered/Resolved]

NARRATIVE: CASE EVENT DATE: 20220625
